FAERS Safety Report 7226797-3 (Version None)
Quarter: 2011Q1

REPORT INFORMATION
  Report Type: 
  Country: None (occurrence: None)
  Receive Date: 20110110
  Receipt Date: 20110110
  Transmission Date: 20110831
  Serious: Yes (Hospitalization)
  Sender: FDA-Public Use
  Company Number: None

PATIENT
  Age: 75 Year
  Sex: Male
  Weight: 54 kg

DRUGS (2)
  1. QUETIAPINE [Suspect]
     Indication: DEMENTIA
     Dosage: 25 MG HS PO
     Route: 048
     Dates: start: 20100618, end: 20100620
  2. QUETIAPINE [Suspect]
     Indication: AGITATION
     Dosage: 25 MG HS PO
     Route: 048
     Dates: start: 20100618, end: 20100620

REACTIONS (3)
  - FALL [None]
  - MENTAL STATUS CHANGES [None]
  - SEDATION [None]
